FAERS Safety Report 6963923-5 (Version None)
Quarter: 2010Q3

REPORT INFORMATION
  Report Type: 
  Country: None (occurrence: None)
  Receive Date: 20100902
  Receipt Date: 20100827
  Transmission Date: 20110219
  Serious: Yes (Hospitalization, Other)
  Sender: FDA-Public Use
  Company Number: BE-AMGEN-UK381446

PATIENT
  Sex: Female

DRUGS (4)
  1. ROMIPLOSTIM [Suspect]
     Indication: IDIOPATHIC THROMBOCYTOPENIC PURPURA
     Route: 058
     Dates: start: 20080804, end: 20091109
  2. NPLATE [Concomitant]
     Dates: start: 20091116
  3. MAGNESIUM [Concomitant]
     Route: 048
     Dates: start: 20090209, end: 20091202
  4. SERETIDE [Concomitant]
     Dates: start: 20080601, end: 20091202

REACTIONS (1)
  - MIGRAINE [None]
